FAERS Safety Report 17054065 (Version 6)
Quarter: 2020Q3

REPORT INFORMATION
  Report Type: Spontaneous
  Country: US (occurrence: US)
  Receive Date: 20191120
  Receipt Date: 20200812
  Transmission Date: 20201102
  Serious: Yes (Other)
  Sender: FDA-Public Use
  Company Number: US-PFIZER INC-2019501792

PATIENT
  Age: 83 Year
  Sex: Male
  Weight: 78 kg

DRUGS (4)
  1. PREGABALIN. [Suspect]
     Active Substance: PREGABALIN
     Indication: PAIN
  2. PREGABALIN. [Suspect]
     Active Substance: PREGABALIN
     Indication: NEUROPATHY PERIPHERAL
     Dosage: 100 MG, 3X/DAY
     Route: 048
     Dates: start: 2010
  3. PREGABALIN. [Suspect]
     Active Substance: PREGABALIN
     Indication: POLYNEUROPATHY
     Dosage: UNK
     Route: 048
     Dates: start: 201907
  4. TRAMADOL. [Concomitant]
     Active Substance: TRAMADOL
     Indication: NEUROPATHY PERIPHERAL
     Dosage: 50 MG, 2X/DAY

REACTIONS (11)
  - Drug ineffective [Not Recovered/Not Resolved]
  - Osteoarthritis [Unknown]
  - Tooth disorder [Unknown]
  - Body mass index increased [Unknown]
  - Benign prostatic hyperplasia [Unknown]
  - Major depression [Unknown]
  - Diplopia [Unknown]
  - Vision blurred [Unknown]
  - Hypertension [Unknown]
  - Gait disturbance [Unknown]
  - Essential hypertension [Unknown]

NARRATIVE: CASE EVENT DATE: 20190422
